FAERS Safety Report 10528121 (Version 1)
Quarter: 2014Q4

REPORT INFORMATION
  Report Type: Spontaneous
  Country: US (occurrence: None)
  Receive Date: 20141016
  Receipt Date: 20141016
  Transmission Date: 20150528
  Serious: Yes (Hospitalization, Other)
  Sender: FDA-Public Use
  Company Number: None

PATIENT
  Age: 17 Year
  Sex: Female
  Weight: 57 kg

DRUGS (2)
  1. DYNACIN [Suspect]
     Active Substance: MINOCYCLINE HYDROCHLORIDE
     Indication: ACNE
     Route: 048
  2. CIPRODEX [Concomitant]
     Active Substance: CIPROFLOXACIN HYDROCHLORIDE\DEXAMETHASONE

REACTIONS (7)
  - Respiratory distress [None]
  - Abdominal pain [None]
  - Vomiting [None]
  - Pancreatitis [None]
  - Hypoalbuminaemia [None]
  - Abdominal distension [None]
  - Dyspnoea [None]

NARRATIVE: CASE EVENT DATE: 20141007
